FAERS Safety Report 12086704 (Version 1)
Quarter: 2016Q1

REPORT INFORMATION
  Report Type: Spontaneous
  Country: US (occurrence: US)
  Receive Date: 20160217
  Receipt Date: 20160217
  Transmission Date: 20160526
  Serious: No
  Sender: FDA-Public Use
  Company Number: US-ALLERGAN-1503081US

PATIENT
  Age: 68 Year
  Sex: Female

DRUGS (10)
  1. REFRESH OPTIVE [Suspect]
     Active Substance: CARBOXYMETHYLCELLULOSE SODIUM\GLYCERIN
     Indication: DRY EYE
     Dosage: UNK
     Route: 047
     Dates: start: 20140816
  2. LORAZEPAM. [Concomitant]
     Active Substance: LORAZEPAM
     Indication: INSOMNIA
     Dosage: AS NEEDED
  3. LOSARTAN POTASSIUM. [Concomitant]
     Active Substance: LOSARTAN POTASSIUM
  4. VITAMIN D3 [Concomitant]
     Active Substance: CHOLECALCIFEROL
  5. RESTASIS [Suspect]
     Active Substance: CYCLOSPORINE
     Indication: DRY EYE
     Dosage: 1 DROP IN EACH EYE 2 X A DAY
     Route: 047
     Dates: start: 20141014, end: 20141217
  6. LEVOTHYROXINE. [Concomitant]
     Active Substance: LEVOTHYROXINE
     Dosage: UNK
  7. RESTASIS [Suspect]
     Active Substance: CYCLOSPORINE
     Dosage: 1 DROP IN EACH EYE 2 X A DAY
     Route: 047
     Dates: start: 20141014, end: 20141217
  8. FENOFIBRATE. [Concomitant]
     Active Substance: FENOFIBRATE
     Dosage: UNK
  9. REFRESH OPTIVE ADVANCED [Suspect]
     Active Substance: CARBOXYMETHYLCELLULOSE SODIUM\GLYCERIN\POLYSORBATE 80
     Indication: DRY EYE
     Dosage: UNK
     Route: 047
     Dates: start: 20140820, end: 20140827
  10. OMEGA 3 FISH OIL                   /01334101/ [Concomitant]
     Active Substance: FISH OIL

REACTIONS (4)
  - Eye irritation [Unknown]
  - Drug hypersensitivity [Not Recovered/Not Resolved]
  - Vision blurred [Unknown]
  - Expired product administered [Unknown]

NARRATIVE: CASE EVENT DATE: 20140820
